FAERS Safety Report 25680447 (Version 1)
Quarter: 2025Q3

REPORT INFORMATION
  Report Type: Spontaneous
  Country: US (occurrence: US)
  Receive Date: 20250814
  Receipt Date: 20250814
  Transmission Date: 20251021
  Serious: Yes (Hospitalization)
  Sender: MYLAN
  Company Number: US-MYLANLABS-2025M1067163

PATIENT
  Age: 20 Month
  Sex: Female

DRUGS (8)
  1. PREDNISONE [Suspect]
     Active Substance: PREDNISONE
     Indication: Linear IgA disease
  2. PREDNISONE [Suspect]
     Active Substance: PREDNISONE
  3. AMOXICILLIN [Suspect]
     Active Substance: AMOXICILLIN
     Indication: Otitis media acute
  4. DAPSONE [Suspect]
     Active Substance: DAPSONE
     Indication: Linear IgA disease
     Dosage: 0.5 MILLIGRAM/KILOGRAM, QD
  5. DAPSONE [Suspect]
     Active Substance: DAPSONE
     Dosage: 1 MILLIGRAM/KILOGRAM, QD
  6. HUMAN IMMUNOGLOBULIN G [Suspect]
     Active Substance: HUMAN IMMUNOGLOBULIN G
     Indication: Linear IgA disease
  7. RITUXIMAB [Concomitant]
     Active Substance: RITUXIMAB
     Indication: Linear IgA disease
  8. RITUXIMAB [Concomitant]
     Active Substance: RITUXIMAB

REACTIONS (3)
  - Linear IgA disease [Recovering/Resolving]
  - Drug ineffective [Unknown]
  - Off label use [Unknown]
